FAERS Safety Report 9027855 (Version 2)
Quarter: 2015Q2

REPORT INFORMATION
  Report Type: Spontaneous
  Country: FR (occurrence: FR)
  Receive Date: 20130124
  Receipt Date: 20150616
  Transmission Date: 20150821
  Serious: Yes (Hospitalization)
  Sender: FDA-Public Use
  Company Number: FR-AMGEN-FRASP2013003058

PATIENT
  Age: 87 Year
  Sex: Female

DRUGS (9)
  1. NPLATE [Suspect]
     Active Substance: ROMIPLOSTIM
     Indication: THROMBOCYTOPENIC PURPURA
     Dosage: 250 MUG, QWK
     Route: 042
     Dates: end: 201211
  2. LEVOTHYROX [Concomitant]
     Active Substance: LEVOTHYROXINE
     Dosage: 100 MG, QD
     Route: 048
  3. SOLUPRED                           /00016201/ [Concomitant]
     Active Substance: PREDNISOLONE
     Dosage: 5 MG, BID
     Route: 048
  4. NATECAL D3 [Concomitant]
     Active Substance: CALCIUM CARBONATE\CHOLECALCIFEROL
     Dosage: UNK UNK, BID
     Route: 048
  5. VALDOXAN [Concomitant]
     Active Substance: AGOMELATINE
     Dosage: 25 MG, QD
     Route: 048
  6. AERIUS [Concomitant]
     Active Substance: DESLORATADINE
     Dosage: 5 MG, UNK
     Route: 048
  7. AMLOR [Concomitant]
     Active Substance: AMLODIPINE BESYLATE
     Dosage: 5 MG, QD
     Route: 048
  8. LAROXYL [Concomitant]
     Active Substance: AMITRIPTYLINE
     Dosage: 100 MG, QD
     Route: 048
  9. SPECIAFOLDINE [Concomitant]
     Active Substance: FOLIC ACID
     Dosage: 5 MG, QD
     Route: 048

REACTIONS (1)
  - Agranulocytosis [Recovered/Resolved]
